FAERS Safety Report 20966650 (Version 1)
Quarter: 2022Q2

REPORT INFORMATION
  Report Type: Spontaneous
  Country: US (occurrence: None)
  Receive Date: 20220615
  Receipt Date: 20220615
  Transmission Date: 20220721
  Serious: Yes (Hospitalization, Other)
  Sender: FDA-Public Use
  Company Number: None

PATIENT
  Age: 32 Year
  Sex: Female
  Weight: 94.5 kg

DRUGS (1)
  1. STELARA [Suspect]
     Active Substance: USTEKINUMAB
     Indication: Psoriasis
     Dates: start: 20220518

REACTIONS (3)
  - Diabetic ketoacidosis [None]
  - Feeling abnormal [None]
  - Dyspnoea [None]

NARRATIVE: CASE EVENT DATE: 20220609
